FAERS Safety Report 11644935 (Version 2)
Quarter: 2015Q4

REPORT INFORMATION
  Report Type: Spontaneous
  Country: US (occurrence: US)
  Receive Date: 20151020
  Receipt Date: 20151109
  Transmission Date: 20160304
  Serious: Yes (Hospitalization)
  Sender: FDA-Public Use
  Company Number: US-AUROBINDO-AUR-APL-2015-09295

PATIENT
  Age: 65 Year
  Sex: Male

DRUGS (1)
  1. RISPERIDONE 2MG [Suspect]
     Active Substance: RISPERIDONE
     Indication: PRODUCT USED FOR UNKNOWN INDICATION
     Dosage: 2 MG, UNK
     Route: 048

REACTIONS (4)
  - Spasmodic dysphonia [Recovered/Resolved]
  - Stridor [Recovered/Resolved]
  - Throat tightness [Recovered/Resolved]
  - Tachycardia [Recovered/Resolved]
